FAERS Safety Report 13639130 (Version 3)
Quarter: 2017Q3

REPORT INFORMATION
  Report Type: Spontaneous
  Country: US (occurrence: US)
  Receive Date: 20170609
  Receipt Date: 20170810
  Transmission Date: 20171127
  Serious: Yes (Life-Threatening, Hospitalization, Other)
  Sender: FDA-Public Use
  Company Number: US-009507513-1706USA002906

PATIENT
  Age: 74 Year
  Sex: Male
  Weight: 48.07 kg

DRUGS (5)
  1. METFORMIN [Concomitant]
     Active Substance: METFORMIN HYDROCHLORIDE
     Dosage: UNK
  2. PRECOSE [Concomitant]
     Active Substance: ACARBOSE
     Dosage: UNK
  3. JANUVIA [Suspect]
     Active Substance: SITAGLIPTIN PHOSPHATE
     Indication: BLOOD GLUCOSE ABNORMAL
     Dosage: 1 TABLET (100 MG) ONCE A DAY
     Route: 048
     Dates: start: 2006, end: 201703
  4. ASPIRIN. [Suspect]
     Active Substance: ASPIRIN
     Route: 048
  5. GLIPIZIDE. [Concomitant]
     Active Substance: GLIPIZIDE
     Dosage: UNK

REACTIONS (8)
  - Arteriovenous malformation [Unknown]
  - Gastrointestinal haemorrhage [Unknown]
  - Diabetes mellitus inadequate control [Unknown]
  - Blood count abnormal [Not Recovered/Not Resolved]
  - Weight decreased [Unknown]
  - Anaemia [Recovered/Resolved]
  - Diarrhoea [Unknown]
  - Blood iron abnormal [Not Recovered/Not Resolved]

NARRATIVE: CASE EVENT DATE: 2017
